FAERS Safety Report 24575305 (Version 1)
Quarter: 2024Q4

REPORT INFORMATION
  Report Type: Spontaneous
  Country: CN (occurrence: CN)
  Receive Date: 20241104
  Receipt Date: 20241104
  Transmission Date: 20250115
  Serious: Yes (Other)
  Sender: BAXTER
  Company Number: None

PATIENT
  Age: 50 Year
  Sex: Female
  Weight: 63 kg

DRUGS (7)
  1. CYCLOPHOSPHAMIDE [Suspect]
     Active Substance: CYCLOPHOSPHAMIDE
     Indication: Breast cancer female
     Dosage: 50 ML, ONE TIME IN ONE DAY, DILUTED WITH 0.9 G OF CYCLOPHOSPHAMIDE
     Route: 041
     Dates: start: 20240522, end: 20240522
  2. SODIUM CHLORIDE [Suspect]
     Active Substance: SODIUM CHLORIDE
     Indication: Medication dilution
     Dosage: 50 ML, ONE TIME IN ONE DAY, USED TO DILUTE 0.9 G OF CYCLOPHOSPHAMIDE
     Route: 041
     Dates: start: 20240522, end: 20240522
  3. SODIUM CHLORIDE [Suspect]
     Active Substance: SODIUM CHLORIDE
     Dosage: 100 ML, ONE TIME IN ONE DAY, USED TO DILUTE 130 MG OF EPIRUBICIN HYDROCHLORIDE
     Route: 041
     Dates: start: 20240522, end: 20240522
  4. SODIUM CHLORIDE [Suspect]
     Active Substance: SODIUM CHLORIDE
     Dosage: 350 ML, ONE TIME IN ONE DAY, USED TO DILUTE 1250 MG OF DEXRAZOXANE
     Route: 041
     Dates: start: 20240522, end: 20240522
  5. DEXRAZOXANE [Suspect]
     Active Substance: DEXRAZOXANE
     Indication: Breast cancer female
     Dosage: 1250 MG, ONE TIME IN ONE DAY, DILUTED WITH 350 ML OF SODIUM CHLORIDE
     Route: 041
     Dates: start: 20240522, end: 20240522
  6. EPIRUBICIN [Suspect]
     Active Substance: EPIRUBICIN
     Indication: Breast cancer female
     Dosage: 130 MG, ONE TIME IN ONE DAY, DILUTED WITH 100 ML OF SODIUM CHLORIDE
     Route: 041
     Dates: start: 20240522, end: 20240522
  7. PEGYLATED GRANULOCYTE COLONY-STIMULATING FACTOR [Suspect]
     Active Substance: PEGYLATED GRANULOCYTE COLONY-STIMULATING FACTOR
     Indication: Granulocyte count decreased
     Dosage: 6 MG
     Route: 058
     Dates: start: 20240522, end: 20240522

REACTIONS (1)
  - Neutrophil count decreased [Recovering/Resolving]

NARRATIVE: CASE EVENT DATE: 20240602
